FAERS Safety Report 7655759-7 (Version None)
Quarter: 2011Q3

REPORT INFORMATION
  Report Type: 
  Country: None (occurrence: None)
  Receive Date: 20110804
  Receipt Date: 20110725
  Transmission Date: 20111222
  Serious: No
  Sender: FDA-Public Use
  Company Number: US-PFIZER INC-2011142477

PATIENT
  Sex: Male

DRUGS (2)
  1. IBUPROFEN [Suspect]
     Dosage: UNK
  2. NAPROSYN [Suspect]
     Indication: PAIN
     Dosage: UNK

REACTIONS (2)
  - RASH [None]
  - DRUG ERUPTION [None]
